FAERS Safety Report 7943357-7 (Version None)
Quarter: 2011Q4

REPORT INFORMATION
  Report Type: 
  Country: None (occurrence: None)
  Receive Date: 20111128
  Receipt Date: 20111116
  Transmission Date: 20120403
  Serious: Yes (Other)
  Sender: FDA-Public Use
  Company Number: US-BAYER-201028699NA

PATIENT
  Age: 36 Year
  Sex: Female
  Weight: 87.075 kg

DRUGS (2)
  1. MIRENA [Suspect]
     Indication: CONTRACEPTION
     Dosage: 20 MCG/24HR, CONT
     Route: 015
     Dates: start: 20091013, end: 20091112
  2. MIRENA [Suspect]
     Dosage: 20 MCG/24HR, CONT
     Route: 015
     Dates: start: 20091112, end: 20100719

REACTIONS (5)
  - METRORRHAGIA [None]
  - VAGINAL HAEMORRHAGE [None]
  - MEDICAL DEVICE DISCOMFORT [None]
  - DEVICE EXPULSION [None]
  - DEVICE DISLOCATION [None]
